FAERS Safety Report 8926604 (Version 1)
Quarter: 2012Q4

REPORT INFORMATION
  Report Type: 
  Country: GB (occurrence: AU)
  Receive Date: 20121127
  Receipt Date: 20121127
  Transmission Date: 20130627
  Serious: Yes (Hospitalization)
  Sender: FDA-Public Use
  Company Number: PHHY2012AU106287

PATIENT
  Age: 59 Year
  Sex: Male
  Weight: 79 kg

DRUGS (4)
  1. CALCIUM FOLINATE [Suspect]
     Indication: COLON CANCER
     Dosage: 790 mg, QW2
     Route: 042
     Dates: start: 20120131
  2. FLUOROURACIL [Suspect]
     Indication: COLON CANCER
     Route: 040
     Dates: start: 20120131
  3. IRINOTECAN HYDROCHLORIDE [Suspect]
     Indication: COLON CANCER
     Dosage: 355 mg, QW2
     Route: 042
     Dates: start: 20120131
  4. PANADOL [Concomitant]
     Dosage: 1 g

REACTIONS (3)
  - Febrile neutropenia [Not Recovered/Not Resolved]
  - Pyrexia [Not Recovered/Not Resolved]
  - Malaise [Not Recovered/Not Resolved]
